FAERS Safety Report 14183502 (Version 1)
Quarter: 2017Q4

REPORT INFORMATION
  Report Type: Spontaneous
  Country: JP (occurrence: JP)
  Receive Date: 20171113
  Receipt Date: 20171113
  Transmission Date: 20180321
  Serious: Yes (Other)
  Sender: FDA-Public Use
  Company Number: JP-ELI_LILLY_AND_COMPANY-JP201711004302

PATIENT
  Age: 45 Year
  Sex: Female

DRUGS (3)
  1. 5-FU                               /00098801/ [Concomitant]
     Active Substance: FLUOROURACIL
     Indication: GINGIVAL CANCER
     Dosage: UNK
     Dates: start: 201402
  2. CISPLATIN. [Concomitant]
     Active Substance: CISPLATIN
     Indication: GINGIVAL CANCER
     Dosage: UNK
     Dates: start: 201402
  3. ERBITUX [Suspect]
     Active Substance: CETUXIMAB
     Indication: GINGIVAL CANCER
     Dosage: UNK, UNKNOWN
     Route: 041
     Dates: start: 201402

REACTIONS (3)
  - Staphylococcal bacteraemia [Unknown]
  - Cellulitis [Unknown]
  - Lung abscess [Recovered/Resolved]

NARRATIVE: CASE EVENT DATE: 2014
